FAERS Safety Report 11413596 (Version 12)
Quarter: 2020Q2

REPORT INFORMATION
  Report Type: Spontaneous
  Country: US (occurrence: US)
  Receive Date: 20150824
  Receipt Date: 20200616
  Transmission Date: 20200713
  Serious: Yes (Hospitalization, Other)
  Sender: FDA-Public Use
  Company Number: US-PFIZER INC-2015279997

PATIENT
  Age: 84 Year
  Sex: Female
  Weight: 86 kg

DRUGS (12)
  1. LABETALOL [Concomitant]
     Active Substance: LABETALOL\LABETALOL HYDROCHLORIDE
     Indication: BLOOD PRESSURE ABNORMAL
     Dosage: 200 MG, 2X/DAY
     Route: 048
  2. MELOXICAM. [Concomitant]
     Active Substance: MELOXICAM
     Indication: PAIN
  3. LYRICA [Suspect]
     Active Substance: PREGABALIN
     Dosage: 150 MG, 3X/DAY
     Route: 048
     Dates: start: 20190408
  4. AMLODIPINE [Concomitant]
     Active Substance: AMLODIPINE BESYLATE
     Indication: BLOOD PRESSURE ABNORMAL
     Dosage: 10 MG, DAILY
  5. TRIAMTERENE AND HYDROCHLOROTHIAZIDE [Concomitant]
     Active Substance: HYDROCHLOROTHIAZIDE\TRIAMTERENE
     Indication: DIURETIC THERAPY
     Dosage: UNK, 1X/DAY (7.5 MG TRIAMTERENE AND 25 MG HYDROCHLOROTHIAZIDE)
  6. LYRICA [Suspect]
     Active Substance: PREGABALIN
     Dosage: 150 MG, 3X/DAY
     Route: 048
  7. POTASSIUM [Concomitant]
     Active Substance: POTASSIUM
     Indication: BLOOD POTASSIUM ABNORMAL
     Dosage: 10 MEQ, 2X/DAY
  8. ZETIA [Concomitant]
     Active Substance: EZETIMIBE
     Indication: BLOOD CHOLESTEROL ABNORMAL
     Dosage: 10 MG, 1X/DAY
     Route: 048
  9. LYRICA [Suspect]
     Active Substance: PREGABALIN
     Indication: FIBROMYALGIA
     Dosage: 150 MG, 3X/DAY
     Route: 048
  10. LYRICA [Suspect]
     Active Substance: PREGABALIN
     Indication: MYOSITIS
     Dosage: 150 MG, 1X/DAY
     Route: 048
  11. TRAMADOL. [Concomitant]
     Active Substance: TRAMADOL
     Indication: ARTHRITIS
     Dosage: 50 MG, AS NEEDED (EVERY 6 HOURS)
  12. MELOXICAM. [Concomitant]
     Active Substance: MELOXICAM
     Indication: ARTHRITIS
     Dosage: 7.5 MG, 1X/DAY

REACTIONS (5)
  - Mobility decreased [Unknown]
  - Feeling abnormal [Unknown]
  - Intentional product use issue [Unknown]
  - Arthralgia [Unknown]
  - Malaise [Recovered/Resolved]

NARRATIVE: CASE EVENT DATE: 201507
